FAERS Safety Report 12320284 (Version 2)
Quarter: 2016Q2

REPORT INFORMATION
  Report Type: Spontaneous
  Country: US (occurrence: US)
  Receive Date: 20160501
  Receipt Date: 20160503
  Transmission Date: 20160815
  Serious: No
  Sender: FDA-Public Use
  Company Number: PHEH2016US010438

PATIENT
  Sex: Female

DRUGS (2)
  1. TYKERB [Suspect]
     Active Substance: LAPATINIB DITOSYLATE
     Indication: METASTASES TO LUNG
  2. TYKERB [Suspect]
     Active Substance: LAPATINIB DITOSYLATE
     Indication: RECTAL CANCER
     Dosage: 750 MG, QD
     Route: 048
     Dates: start: 20151120

REACTIONS (4)
  - Rash [Unknown]
  - Product use issue [Unknown]
  - Nail discolouration [Unknown]
  - Nail bed disorder [Unknown]
